FAERS Safety Report 12743336 (Version 2)
Quarter: 2016Q3

REPORT INFORMATION
  Report Type: Report from Study
  Country: US (occurrence: US)
  Receive Date: 20160914
  Receipt Date: 20160921
  Transmission Date: 20161109
  Serious: Yes (Hospitalization, Other)
  Sender: FDA-Public Use
  Company Number: US-GILEAD-2016-0232498

PATIENT
  Age: 56 Year
  Sex: Female

DRUGS (5)
  1. LEDIPASVIR/SOFOSBUVIR [Suspect]
     Active Substance: LEDIPASVIR\SOFOSBUVIR
     Indication: HEPATITIS C
     Dosage: 1 DF, UNK
     Route: 048
     Dates: start: 201608
  2. OMEPRAZOLE. [Concomitant]
     Active Substance: OMEPRAZOLE
     Route: 065
  3. PANTOPRAZOLE [Concomitant]
     Active Substance: PANTOPRAZOLE SODIUM
     Route: 065
  4. HEPATITIS B                        /00470101/ [Concomitant]
     Dates: start: 20160906
  5. IRON [Concomitant]
     Active Substance: IRON

REACTIONS (10)
  - Pain [Unknown]
  - Nausea [Unknown]
  - Faeces discoloured [Not Recovered/Not Resolved]
  - Diarrhoea [Not Recovered/Not Resolved]
  - Gastric ulcer [Unknown]
  - Anaemia [Unknown]
  - Abdominal pain upper [Unknown]
  - Hepatic cirrhosis [Not Recovered/Not Resolved]
  - Haematemesis [Recovered/Resolved]
  - Gastrointestinal ulcer [Not Recovered/Not Resolved]

NARRATIVE: CASE EVENT DATE: 20160905
